FAERS Safety Report 6907404-3 (Version None)
Quarter: 2010Q3

REPORT INFORMATION
  Report Type: 
  Country: None (occurrence: None)
  Receive Date: 20100805
  Receipt Date: 20100802
  Transmission Date: 20110219
  Serious: Yes (Other)
  Sender: FDA-Public Use
  Company Number: US-ASTRAZENECA-2007UW25945

PATIENT
  Age: 360 Month
  Sex: Female
  Weight: 106.6 kg

DRUGS (26)
  1. SEROQUEL [Suspect]
     Indication: MAJOR DEPRESSION
     Dosage: 25-400 MG, QHS
     Route: 048
     Dates: start: 20000301
  2. SEROQUEL [Suspect]
     Indication: INSOMNIA
     Dosage: 25-400 MG, QHS
     Route: 048
     Dates: start: 20000301
  3. SEROQUEL [Suspect]
     Dosage: 50-600 MG
     Route: 048
     Dates: start: 20000501
  4. SEROQUEL [Suspect]
     Dosage: 50-600 MG
     Route: 048
     Dates: start: 20000501
  5. SEROQUEL [Suspect]
     Dosage: 50-300 MG
     Route: 048
     Dates: start: 20000501, end: 20040501
  6. SEROQUEL [Suspect]
     Dosage: 50-300 MG
     Route: 048
     Dates: start: 20000501, end: 20040501
  7. SEROQUEL [Suspect]
     Route: 048
     Dates: start: 20010201
  8. SEROQUEL [Suspect]
     Route: 048
     Dates: start: 20010201
  9. SEROQUEL [Suspect]
     Dosage: 300-600 MG
     Route: 048
     Dates: start: 20040503
  10. SEROQUEL [Suspect]
     Dosage: 300-600 MG
     Route: 048
     Dates: start: 20040503
  11. ZYPREXA [Concomitant]
     Indication: MAJOR DEPRESSION
     Dates: start: 20010514, end: 20010811
  12. GEODON [Concomitant]
     Dates: start: 20060101
  13. DEPAKOTE [Concomitant]
     Dates: start: 20040101, end: 20060101
  14. ZOLOFT [Concomitant]
     Dosage: 50-100 MG
     Dates: start: 19990503
  15. CYMBALTA [Concomitant]
     Route: 048
     Dates: start: 20070601
  16. NEXIUM [Concomitant]
     Route: 048
     Dates: start: 20070601
  17. LUNESTA [Concomitant]
     Indication: SLEEP DISORDER
     Dosage: 3 MG QHS PRN
     Route: 048
     Dates: start: 20070601
  18. ZOCOR [Concomitant]
     Route: 048
     Dates: start: 20070601
  19. LEXAPRO [Concomitant]
     Dates: start: 20070601
  20. DETROL LA [Concomitant]
     Route: 048
     Dates: start: 20070601
  21. LORAZEPAM [Concomitant]
     Indication: ANXIETY
     Dosage: 1 MG TID PRN
     Route: 048
     Dates: start: 20070601
  22. AMARYL [Concomitant]
     Route: 048
     Dates: start: 20070601
  23. ALBUTEROL [Concomitant]
     Indication: ASTHMA
     Dosage: 2 PUFFS
     Dates: start: 20070601
  24. LANTUS [Concomitant]
     Dosage: 60-65 UNITS Q AM
     Route: 023
     Dates: start: 20070101
  25. LANTUS [Concomitant]
     Dosage: 60-65 UNITS Q AM
     Route: 058
     Dates: start: 20070101
  26. DILANTIN [Concomitant]
     Dates: start: 20010801

REACTIONS (46)
  - ARTHRALGIA [None]
  - BACK PAIN [None]
  - BLADDER PAIN [None]
  - BLOOD CHOLESTEROL INCREASED [None]
  - BRONCHITIS [None]
  - CHEST DISCOMFORT [None]
  - CHEST PAIN [None]
  - CHOLECYSTITIS [None]
  - CHOLELITHIASIS [None]
  - CONVULSION [None]
  - DIARRHOEA [None]
  - DYSPNOEA [None]
  - EAR PAIN [None]
  - EPILEPSY [None]
  - GALLBLADDER DISORDER [None]
  - GALLBLADDER PAIN [None]
  - HAND FRACTURE [None]
  - HEADACHE [None]
  - HYPERLIPIDAEMIA [None]
  - HYPOAESTHESIA [None]
  - INFLUENZA [None]
  - JOINT SWELLING [None]
  - KIDNEY INFECTION [None]
  - LIMB INJURY [None]
  - MUSCULOSKELETAL PAIN [None]
  - NAUSEA [None]
  - NECK PAIN [None]
  - OEDEMA PERIPHERAL [None]
  - OROPHARYNGEAL PAIN [None]
  - PAIN [None]
  - PAIN IN EXTREMITY [None]
  - PHARYNGEAL OEDEMA [None]
  - PRURITUS [None]
  - RASH [None]
  - RENAL TUBULAR NECROSIS [None]
  - SINUS CONGESTION [None]
  - SINUS DISORDER [None]
  - SINUS HEADACHE [None]
  - SPINAL COLUMN INJURY [None]
  - THERMAL BURN [None]
  - TOOTH INFECTION [None]
  - TOOTHACHE [None]
  - TYPE 1 DIABETES MELLITUS [None]
  - TYPE 2 DIABETES MELLITUS [None]
  - ULCER [None]
  - VOMITING [None]
